FAERS Safety Report 18621733 (Version 1)
Quarter: 2020Q4

REPORT INFORMATION
  Report Type: Spontaneous
  Country: JP (occurrence: JP)
  Receive Date: 20201215
  Receipt Date: 20201215
  Transmission Date: 20210114
  Serious: Yes (Other)
  Sender: FDA-Public Use
  Company Number: JP-SA-2020SA292626

PATIENT

DRUGS (3)
  1. ADOAIR [Concomitant]
     Active Substance: FLUTICASONE PROPIONATE\SALMETEROL XINAFOATE
     Indication: ASTHMA
     Dosage: 1 INHALATION, BID
     Route: 055
  2. AZUNOL GARGLE LIQUID [Concomitant]
     Indication: PHARYNGITIS
     Dosage: EXTERNAL, SEVERAL TIMES PER DAY
     Route: 065
  3. DUPIXENT [Suspect]
     Active Substance: DUPILUMAB
     Indication: CHRONIC EOSINOPHILIC RHINOSINUSITIS
     Dosage: 300 MG, QOW
     Route: 058
     Dates: start: 20200722

REACTIONS (10)
  - Myalgia [Recovered/Resolved]
  - Myalgia [Recovering/Resolving]
  - Eczema [Recovering/Resolving]
  - Erythema [Recovering/Resolving]
  - Rash [Recovered/Resolved]
  - Arthralgia [Recovering/Resolving]
  - Dermatitis exfoliative [Recovering/Resolving]
  - Malaise [Recovered/Resolved]
  - Arthralgia [Recovering/Resolving]
  - Pruritus [Recovering/Resolving]

NARRATIVE: CASE EVENT DATE: 2020
